FAERS Safety Report 14675073 (Version 1)
Quarter: 2018Q1

REPORT INFORMATION
  Report Type: Spontaneous
  Country: CA (occurrence: CA)
  Receive Date: 20180323
  Receipt Date: 20180323
  Transmission Date: 20180509
  Serious: Yes (Disabling)
  Sender: FDA-Public Use
  Company Number: CA-BAYER-2018-051878

PATIENT
  Age: 42 Year
  Sex: Female
  Weight: 54.43 kg

DRUGS (3)
  1. MIRENA [Suspect]
     Active Substance: LEVONORGESTREL
     Indication: MENSTRUAL CYCLE MANAGEMENT
     Dosage: 20 MCG/24HR, CONT
     Route: 015
  2. IBUPROFEN. [Concomitant]
     Active Substance: IBUPROFEN
  3. ACETAMINOPHEN. [Concomitant]
     Active Substance: ACETAMINOPHEN

REACTIONS (14)
  - Asthenia [Recovered/Resolved]
  - Depressed mood [Recovered/Resolved]
  - Impaired work ability [Recovered/Resolved]
  - Personality change [Recovered/Resolved]
  - Social avoidant behaviour [Recovered/Resolved]
  - Crying [Recovered/Resolved]
  - Decreased interest [Recovered/Resolved]
  - Mental disorder [Recovered/Resolved]
  - Fatigue [Recovered/Resolved]
  - Impatience [Recovered/Resolved]
  - Aggression [Recovered/Resolved]
  - Excessive exercise [Recovered/Resolved]
  - Weight decreased [Recovered/Resolved]
  - Dependence [Recovered/Resolved]
